FAERS Safety Report 13737849 (Version 1)
Quarter: 2017Q3

REPORT INFORMATION
  Report Type: Spontaneous
  Country: US (occurrence: US)
  Receive Date: 20170710
  Receipt Date: 20170710
  Transmission Date: 20171127
  Serious: No
  Sender: FDA-Public Use
  Company Number: US-SAOL THERAPEUTICS-2016SAO00639

PATIENT
  Sex: Female

DRUGS (4)
  1. UNSPECIFIED INTRATHECAL MEDICATION [Suspect]
     Active Substance: UNSPECIFIED INGREDIENT
     Route: 037
  2. BACLOFEN. [Suspect]
     Active Substance: BACLOFEN
     Route: 037
  3. MORPHINE [Suspect]
     Active Substance: MORPHINE
  4. NEURONTIN [Suspect]
     Active Substance: GABAPENTIN
     Route: 037

REACTIONS (1)
  - Incision site swelling [Recovered/Resolved]

NARRATIVE: CASE EVENT DATE: 20160901
